FAERS Safety Report 18507094 (Version 2)
Quarter: 2020Q4

REPORT INFORMATION
  Report Type: Spontaneous
  Country: AU (occurrence: AU)
  Receive Date: 20201116
  Receipt Date: 20201127
  Transmission Date: 20210114
  Serious: Yes (Life-Threatening)
  Sender: FDA-Public Use
  Company Number: AU-ANIPHARMA-2020-AU-000259

PATIENT
  Age: 76 Year
  Sex: Female
  Weight: 67 kg

DRUGS (2)
  1. ANASTROZOLE. [Suspect]
     Active Substance: ANASTROZOLE
     Indication: PRODUCT USED FOR UNKNOWN INDICATION
     Dosage: 1 MG DAILY
     Route: 048
     Dates: start: 201507, end: 20201013
  2. AMLODIPINE [Suspect]
     Active Substance: AMLODIPINE BESYLATE
     Dosage: 2.5 MG DAILY
     Route: 065
     Dates: start: 2018

REACTIONS (4)
  - Depression suicidal [Unknown]
  - Self-injurious ideation [Unknown]
  - Mood swings [Unknown]
  - Fatigue [Unknown]

NARRATIVE: CASE EVENT DATE: 20201025
